FAERS Safety Report 6983207-9 (Version None)
Quarter: 2010Q3

REPORT INFORMATION
  Report Type: 
  Country: None (occurrence: None)
  Receive Date: 20100910
  Receipt Date: 20100825
  Transmission Date: 20110219
  Serious: No
  Sender: FDA-Public Use
  Company Number: 2010US003463

PATIENT
  Age: 9 Year
  Sex: Male

DRUGS (1)
  1. TACROLIMUS [Suspect]
     Indication: DERMATITIS ATOPIC
     Dosage: 0.1%, TOPICAL
     Route: 061
     Dates: start: 20011201

REACTIONS (1)
  - HYPERSENSITIVITY [None]
